FAERS Safety Report 21285416 (Version 1)
Quarter: 2022Q3

REPORT INFORMATION
  Report Type: Spontaneous
  Country: US (occurrence: US)
  Receive Date: 20220902
  Receipt Date: 20220902
  Transmission Date: 20221027
  Serious: Yes (Other)
  Sender: FDA-Public Use
  Company Number: US-SA-SAC20220901000750

PATIENT

DRUGS (2)
  1. ZANTAC [Suspect]
     Active Substance: RANITIDINE HYDROCHLORIDE
     Dosage: OVER THE COUNTER ZANTAC ,PRESCRIPTION ZANTAC (TABLET)
     Route: 048
     Dates: start: 1990, end: 2017
  2. RANITIDINE HYDROCHLORIDE [Suspect]
     Active Substance: RANITIDINE HYDROCHLORIDE
     Dosage: OVER THE COUNTER RANITIDINE, PRESCRIPTION RANITIDINE(TABLET)
     Route: 048
     Dates: start: 2017, end: 2017

REACTIONS (2)
  - Uterine cancer [Unknown]
  - Prostate cancer [Unknown]
